FAERS Safety Report 14770863 (Version 1)
Quarter: 2018Q2

REPORT INFORMATION
  Report Type: Spontaneous
  Country: US (occurrence: US)
  Receive Date: 20180411
  Receipt Date: 20180411
  Transmission Date: 20180711
  Serious: No
  Sender: FDA-Public Use
  Company Number: None

PATIENT
  Sex: Female

DRUGS (4)
  1. PRAVASTATIN. [Suspect]
     Active Substance: PRAVASTATIN
  2. ATORVASTATIN [Concomitant]
     Active Substance: ATORVASTATIN
  3. ROSUVASTATIN. [Suspect]
     Active Substance: ROSUVASTATIN
  4. LOVASTATIN. [Concomitant]
     Active Substance: LOVASTATIN

REACTIONS (2)
  - Hypersensitivity [None]
  - Myalgia [None]
